FAERS Safety Report 20720825 (Version 1)
Quarter: 2022Q2

REPORT INFORMATION
  Report Type: Spontaneous
  Country: RS (occurrence: RS)
  Receive Date: 20220418
  Receipt Date: 20220418
  Transmission Date: 20220721
  Serious: Yes (Hospitalization, Other)
  Sender: FDA-Public Use
  Company Number: RS-NOVARTISPH-NVSC2022RS084876

PATIENT
  Age: 50 Year
  Sex: Male
  Weight: 120 kg

DRUGS (31)
  1. ENTRESTO [Suspect]
     Active Substance: SACUBITRIL\VALSARTAN
     Indication: Product used for unknown indication
     Dosage: 50 MG, BID
     Route: 065
     Dates: start: 202103
  2. ENTRESTO [Suspect]
     Active Substance: SACUBITRIL\VALSARTAN
     Dosage: 50 MG, QD
     Route: 065
  3. EMPAGLIFLOZIN [Concomitant]
     Active Substance: EMPAGLIFLOZIN
     Indication: Product used for unknown indication
     Dosage: UNK
     Route: 065
  4. TENSEC [Concomitant]
     Indication: Product used for unknown indication
     Dosage: 5 MG, BID
     Route: 065
  5. MIDOL [Concomitant]
     Active Substance: IBUPROFEN
     Indication: Product used for unknown indication
     Dosage: 100 MG, QD
     Route: 065
  6. TICAGRELOR [Concomitant]
     Active Substance: TICAGRELOR
     Indication: Product used for unknown indication
     Dosage: 2 DOSAGE FORM, QD, FOR 1 YEAR
     Route: 065
  7. TICAGRELOR [Concomitant]
     Active Substance: TICAGRELOR
     Dosage: 90 MG, BID
     Route: 065
  8. JARDIANCE [Concomitant]
     Active Substance: EMPAGLIFLOZIN
     Indication: Product used for unknown indication
     Dosage: 10 MG, QD
     Route: 065
  9. JARDIANCE [Concomitant]
     Active Substance: EMPAGLIFLOZIN
     Dosage: 20 UNK, QD
     Route: 065
  10. JARDIANCE [Concomitant]
     Active Substance: EMPAGLIFLOZIN
     Dosage: 20 MG, QD, IN THE MORNING
     Route: 065
  11. TRIMETAZIDINE DIHYDROCHLORIDE [Concomitant]
     Active Substance: TRIMETAZIDINE DIHYDROCHLORIDE
     Indication: Product used for unknown indication
     Dosage: 80 MG, QD
     Route: 065
  12. NOVORAPID [Concomitant]
     Active Substance: INSULIN ASPART
     Indication: Product used for unknown indication
     Dosage: 3 DOSAGE FORM
     Route: 065
  13. TRESIBA [Concomitant]
     Active Substance: INSULIN DEGLUDEC
     Indication: Product used for unknown indication
     Dosage: 18 IU AT 22H
     Route: 065
  14. PANTOPRAZOLE SODIUM [Concomitant]
     Active Substance: PANTOPRAZOLE SODIUM
     Indication: Product used for unknown indication
     Dosage: UNK UNK, QD, IN THE MORNING
     Route: 065
  15. PANTOPRAZOLE SODIUM [Concomitant]
     Active Substance: PANTOPRAZOLE SODIUM
     Dosage: 20 MG, QD
     Route: 065
  16. PANCEF [Concomitant]
     Indication: Product used for unknown indication
     Dosage: 400 MG, QD
     Route: 065
  17. PROBIOTICS NOS [Concomitant]
     Active Substance: PROBIOTICS NOS
     Indication: Product used for unknown indication
     Dosage: UNK, QD, NEXT 5 DAYS
     Route: 065
  18. ROSUVASTATIN [Concomitant]
     Active Substance: ROSUVASTATIN
     Indication: Product used for unknown indication
     Dosage: 20 MG, QD, IN THE EVENING
     Route: 065
  19. TICAGRELOR [Concomitant]
     Active Substance: TICAGRELOR
     Indication: Product used for unknown indication
     Dosage: UNK
     Route: 065
     Dates: start: 20210303
  20. SPIRONOLACTONE [Concomitant]
     Active Substance: SPIRONOLACTONE
     Indication: Product used for unknown indication
     Dosage: 50 UNK, QD
     Route: 065
  21. SPIRONOLACTONE [Concomitant]
     Active Substance: SPIRONOLACTONE
     Dosage: 50 MG, QD, IN THE NOON
     Route: 065
  22. FUROSEMIDE [Concomitant]
     Active Substance: FUROSEMIDE
     Indication: Product used for unknown indication
     Dosage: 2 DOSAGE FORM
     Route: 065
  23. FUROSEMIDE [Concomitant]
     Active Substance: FUROSEMIDE
     Dosage: UNK, F 1/4 OF TABLET
     Route: 065
  24. BINEVOL [Concomitant]
     Indication: Product used for unknown indication
     Dosage: 0.5 DOSAGE FORM, QD, IN THE MORNING
     Route: 065
  25. ROSUVASTATIN CALCIUM [Concomitant]
     Active Substance: ROSUVASTATIN CALCIUM
     Indication: Product used for unknown indication
     Dosage: 20 MG, QD, IN THE EVENING
     Route: 065
  26. ROSUVASTATIN CALCIUM [Concomitant]
     Active Substance: ROSUVASTATIN CALCIUM
     Dosage: 10 MG, QD, IN THE EVENING
     Route: 065
  27. ASPIRIN [Concomitant]
     Active Substance: ASPIRIN
     Indication: Product used for unknown indication
     Dosage: 300 MG
     Route: 065
     Dates: start: 20210303
  28. HEPARIN [Concomitant]
     Active Substance: HEPARIN SODIUM
     Indication: Product used for unknown indication
     Dosage: 10000 IU, UFH 10000IU
     Route: 065
     Dates: start: 20210303
  29. LASIX [Concomitant]
     Active Substance: FUROSEMIDE
     Indication: Product used for unknown indication
     Dosage: UNK, BID, FIRST 3 DAYS
     Route: 042
  30. LASIX [Concomitant]
     Active Substance: FUROSEMIDE
     Dosage: UNK, QD, 5 MORE DAYS
     Route: 065
  31. LASIX [Concomitant]
     Active Substance: FUROSEMIDE
     Dosage: UNK, AMPULE II/12H FOR 4 DAYS
     Route: 042

REACTIONS (9)
  - Cardiac failure [Unknown]
  - Dyspnoea [Unknown]
  - Blood potassium increased [Unknown]
  - Fatigue [Unknown]
  - Oedema peripheral [Unknown]
  - Localised oedema [Unknown]
  - Blood urea increased [Unknown]
  - Blood creatinine increased [Unknown]
  - Off label use [Unknown]

NARRATIVE: CASE EVENT DATE: 20211201
